FAERS Safety Report 4406658-5 (Version None)
Quarter: 2004Q3

REPORT INFORMATION
  Report Type: 
  Country: None (occurrence: None)
  Receive Date: 20040720
  Receipt Date: 20040423
  Transmission Date: 20050211
  Serious: Yes (Death, Hospitalization)
  Sender: FDA-Public Use
  Company Number: 2001-BL-00083

PATIENT
  Age: 23 Year
  Sex: Female

DRUGS (4)
  1. VIRAMUNE [Suspect]
     Indication: HIV INFECTION
     Dosage: 200 + 400 MG (200 MG, 1 IN 24 HR) PO
     Route: 048
     Dates: start: 20010507, end: 20010524
  2. VIRAMUNE [Suspect]
     Indication: HIV INFECTION
     Dosage: 200 + 400 MG (200 MG, 1 IN 24 HR) PO
     Route: 048
     Dates: start: 20010524, end: 20010608
  3. STAVUDIEN(STAVUDINE) (KA) [Concomitant]
  4. LAMIVUDINE(LAMIVUDINE) (TA) [Concomitant]

REACTIONS (42)
  - ALDOLASE INCREASED [None]
  - ANION GAP INCREASED [None]
  - ASPIRATION BRONCHIAL [None]
  - ASTERIXIS [None]
  - BACK PAIN [None]
  - BLOOD BICARBONATE DECREASED [None]
  - CARDIO-RESPIRATORY ARREST [None]
  - CHOLECYSTITIS [None]
  - CHOLESTASIS [None]
  - CHOLURIA [None]
  - COAGULOPATHY [None]
  - DIALYSIS [None]
  - DOUGLAS' POUCH EFFUSION [None]
  - DRUG TOXICITY [None]
  - EOSINOPHILIA [None]
  - GALLBLADDER DISORDER [None]
  - HAEMATOCRIT DECREASED [None]
  - HEART RATE INCREASED [None]
  - HEPATIC NECROSIS [None]
  - HEPATIC STEATOSIS [None]
  - HEPATITIS ACUTE [None]
  - HEPATOMEGALY [None]
  - HEPATOTOXICITY [None]
  - HYPERKALAEMIA [None]
  - HYPOTENSION [None]
  - HYPOVENTILATION [None]
  - KIDNEY ENLARGEMENT [None]
  - LUNG INFILTRATION [None]
  - METABOLIC ACIDOSIS [None]
  - MUSCULAR WEAKNESS [None]
  - MYALGIA [None]
  - PERICARDIAL RUB [None]
  - PLATELET COUNT DECREASED [None]
  - PLEURAL EFFUSION [None]
  - PROTHROMBIN TIME PROLONGED [None]
  - RASH ERYTHEMATOUS [None]
  - RASH MACULAR [None]
  - RENAL FAILURE [None]
  - RENAL IMPAIRMENT [None]
  - RESPIRATORY RATE INCREASED [None]
  - SENSORY DISTURBANCE [None]
  - VOMITING [None]
